FAERS Safety Report 6370956-9 (Version None)
Quarter: 2009Q3

REPORT INFORMATION
  Report Type: 
  Country: None (occurrence: None)
  Receive Date: 20090923
  Receipt Date: 20070917
  Transmission Date: 20100115
  Serious: Yes (Other)
  Sender: FDA-Public Use
  Company Number: US-ASTRAZENECA-2006UW23077

PATIENT
  Age: 44 Year
  Sex: Male

DRUGS (19)
  1. SEROQUEL [Suspect]
     Indication: BIPOLAR DISORDER
     Route: 048
     Dates: start: 20000101, end: 20050101
  2. SEROQUEL [Suspect]
     Indication: DEPRESSION
     Route: 048
     Dates: start: 20000101, end: 20050101
  3. SEROQUEL [Suspect]
     Dosage: 100 MG - 900 MG
     Route: 048
     Dates: start: 20000812
  4. SEROQUEL [Suspect]
     Dosage: 100 MG - 900 MG
     Route: 048
     Dates: start: 20000812
  5. ABILIFY [Concomitant]
     Route: 048
     Dates: start: 20060914
  6. CLOZARIL [Concomitant]
  7. GEODON [Concomitant]
  8. GEODON [Concomitant]
  9. THORAZINE [Concomitant]
  10. TRILAFON [Concomitant]
  11. ZYPREXA [Concomitant]
     Route: 048
     Dates: start: 20000918
  12. METFORMIN HCL [Concomitant]
     Route: 048
     Dates: start: 20040419
  13. GABAPENTIN [Concomitant]
     Route: 048
     Dates: start: 20041101
  14. AMARYL [Concomitant]
     Route: 048
     Dates: start: 20060419
  15. LITHIUM [Concomitant]
     Route: 048
     Dates: start: 20000421
  16. VALIUM [Concomitant]
     Route: 048
     Dates: start: 20000421
  17. CELEXA [Concomitant]
     Route: 048
     Dates: start: 20000421
  18. TRAZODONE [Concomitant]
     Indication: INSOMNIA
     Route: 048
     Dates: start: 20000421
  19. ATIVAN [Concomitant]
     Route: 048

REACTIONS (2)
  - HYPOGLYCAEMIA [None]
  - TYPE 2 DIABETES MELLITUS [None]
